FAERS Safety Report 7556320-5 (Version None)
Quarter: 2011Q2

REPORT INFORMATION
  Report Type: 
  Country: None (occurrence: None)
  Receive Date: 20110620
  Receipt Date: 20110616
  Transmission Date: 20111010
  Serious: No
  Sender: FDA-Public Use
  Company Number: US-PFIZER INC-2011133472

PATIENT
  Sex: Male
  Weight: 72.562 kg

DRUGS (2)
  1. ACETYLSALICYLIC ACID [Concomitant]
     Dosage: UNK
  2. VIAGRA [Suspect]
     Indication: ERECTILE DYSFUNCTION
     Dosage: 100 MG, AS NEEDED
     Route: 048
     Dates: start: 20100101

REACTIONS (1)
  - DRUG INEFFECTIVE [None]
